FAERS Safety Report 5215299-1 (Version None)
Quarter: 2007Q1

REPORT INFORMATION
  Report Type: 
  Country: None (occurrence: None)
  Receive Date: 20061122
  Receipt Date: 20060221
  Transmission Date: 20070707
  Serious: Yes (Other)
  Sender: FDA-Public Use
  Company Number: HQWYE011327FEB06

PATIENT
  Age: 66 Year
  Sex: Female
  Weight: 72.64 kg

DRUGS (2)
  1. PREMARIN [Suspect]
     Indication: HORMONE REPLACEMENT THERAPY
     Dosage: 1 G 1X PER 1 DAY, VAGINAL
     Route: 067
     Dates: start: 20060219, end: 20060219
  2. AMBIEN [Concomitant]

REACTIONS (3)
  - DYSPNOEA [None]
  - HEADACHE [None]
  - TOOTHACHE [None]
